FAERS Safety Report 4536877-9 (Version None)
Quarter: 2004Q4

REPORT INFORMATION
  Report Type: 
  Country: None (occurrence: None)
  Receive Date: 20041220
  Receipt Date: 20041207
  Transmission Date: 20050328
  Serious: Yes (Hospitalization)
  Sender: FDA-Public Use
  Company Number: 2004UW25045

PATIENT
  Age: 45 Year
  Sex: Male

DRUGS (8)
  1. CRESTOR [Suspect]
     Dosage: 10 MG QD PO
     Route: 048
  2. FLAGYL [Concomitant]
  3. AMOXICILLIN [Concomitant]
  4. PANTOPRAZOLE SODIUM [Concomitant]
  5. INSULIN [Concomitant]
  6. WARFARIN SODIUM [Concomitant]
  7. CLOPIDOGREL [Concomitant]
  8. ALPRAZOLAM [Concomitant]

REACTIONS (8)
  - BLOOD CREATINE PHOSPHOKINASE INCREASED [None]
  - BLOOD CREATININE INCREASED [None]
  - DEHYDRATION [None]
  - DIARRHOEA [None]
  - HYPOTENSION [None]
  - MYALGIA [None]
  - NAUSEA [None]
  - VOMITING [None]
